FAERS Safety Report 16474884 (Version 1)
Quarter: 2019Q2

REPORT INFORMATION
  Report Type: Spontaneous
  Country: US (occurrence: US)
  Receive Date: 20190624
  Receipt Date: 20190624
  Transmission Date: 20190711
  Serious: Yes (Other)
  Sender: FDA-Public Use
  Company Number: None

PATIENT
  Age: 34 Year
  Sex: Male
  Weight: 90 kg

DRUGS (9)
  1. FLAXSEED [Concomitant]
     Active Substance: FLAX SEED
  2. TESTOTERONE CYPIONATE / TESTOSTERONE PROPIONATE [Suspect]
     Active Substance: TESTOSTERONE CYPIONATE\TESTOSTERONE PROPIONATE
     Indication: HORMONE REPLACEMENT THERAPY
     Dosage: ?          QUANTITY:220 INJECTION(S);OTHER FREQUENCY:TWICE A WEEK;?
     Route: 030
     Dates: start: 20190414, end: 20190612
  3. MULTI-VITAMIN [Concomitant]
     Active Substance: .ALPHA.-TOCOPHEROL ACETATE, DL-\ASCORBIC ACID\CYANOCOBALAMIN\FLUORIDE ION\FOLIC ACID\NIACIN\PYRIDOXINE\RIBOFLAVIN\THIAMINE\VITAMIN A\VITAMIN D
  4. FISH OIL [Concomitant]
     Active Substance: FISH OIL
  5. TUDCA [Concomitant]
  6. IBUPROFEN. [Concomitant]
     Active Substance: IBUPROFEN
  7. VITAMIN D3 [Concomitant]
     Active Substance: CHOLECALCIFEROL
  8. NAC [Concomitant]
     Active Substance: ACETYLCYSTEINE
  9. HCG [Concomitant]
     Active Substance: GONADOTROPHIN, CHORIONIC

REACTIONS (6)
  - Victim of crime [None]
  - Oestradiol abnormal [None]
  - Hormone level abnormal [None]
  - Lymphocyte count increased [None]
  - Blood testosterone increased [None]
  - Lipids abnormal [None]

NARRATIVE: CASE EVENT DATE: 20190605
